FAERS Safety Report 5965766-8 (Version None)
Quarter: 2008Q4

REPORT INFORMATION
  Report Type: 
  Country: None (occurrence: None)
  Receive Date: 20081125
  Receipt Date: 20081119
  Transmission Date: 20090506
  Serious: Yes (Other)
  Sender: FDA-Public Use
  Company Number: FR-ABBOTT-08P-056-0480931-00

PATIENT
  Sex: Male
  Weight: 80 kg

DRUGS (4)
  1. HUMIRA [Suspect]
     Indication: ANKYLOSING SPONDYLITIS
     Route: 058
     Dates: start: 20080130, end: 20080922
  2. SULFASALAZINE [Suspect]
     Indication: ANKYLOSING SPONDYLITIS
     Route: 048
     Dates: start: 20050402, end: 20080922
  3. CELECOXIB [Suspect]
     Indication: ANKYLOSING SPONDYLITIS
     Route: 048
     Dates: start: 20041011, end: 20080922
  4. PARACETAMOL [Suspect]
     Indication: ANKYLOSING SPONDYLITIS
     Dosage: 1 TO 2 GRAM DAILY
     Route: 048
     Dates: start: 20040110, end: 20080922

REACTIONS (3)
  - ASTHENIA [None]
  - MALAISE [None]
  - PSORIASIS [None]
